FAERS Safety Report 13568226 (Version 6)
Quarter: 2017Q3

REPORT INFORMATION
  Report Type: Report from Study
  Country: US (occurrence: US)
  Receive Date: 20170522
  Receipt Date: 20170713
  Transmission Date: 20171127
  Serious: Yes (Life-Threatening, Hospitalization, Disabling)
  Sender: FDA-Public Use
  Company Number: US-TEVA-771442ACC

PATIENT
  Age: 47 Year
  Sex: Male

DRUGS (9)
  1. IBRUTINIB [Suspect]
     Active Substance: IBRUTINIB
     Dosage: 420 MILLIGRAM DAILY;
     Route: 048
     Dates: start: 20160726, end: 20161013
  2. BENDAMUSTINE HYDROCHLORIDE. [Suspect]
     Active Substance: BENDAMUSTINE HYDROCHLORIDE
     Indication: CHRONIC LYMPHOCYTIC LEUKAEMIA STAGE 2
     Dosage: (ON DAY 1 AND 2 OF THE 28 DAY CYCLE)
     Route: 042
     Dates: start: 20160721
  3. IBRUTINIB [Suspect]
     Active Substance: IBRUTINIB
     Dosage: 420 MILLIGRAM DAILY;
     Route: 048
     Dates: start: 20161014
  4. MOTRIN [Concomitant]
     Active Substance: IBUPROFEN
     Indication: PAIN
  5. RITUXIMAB. [Suspect]
     Active Substance: RITUXIMAB
     Indication: CHRONIC LYMPHOCYTIC LEUKAEMIA STAGE 2
     Dosage: (ON DAY 1 AND 2 OF THE 28 DAY CYCLE)
     Route: 042
     Dates: start: 20160721
  6. BENDAMUSTINE HYDROCHLORIDE. [Suspect]
     Active Substance: BENDAMUSTINE HYDROCHLORIDE
     Dosage: (EVERY 28 DAYS)
     Route: 042
     Dates: start: 20160722, end: 20161013
  7. RITUXIMAB. [Suspect]
     Active Substance: RITUXIMAB
     Dosage: (EVERY 28 DAYS)
     Route: 042
     Dates: start: 20160722, end: 20161013
  8. MOTRIN [Concomitant]
     Active Substance: IBUPROFEN
     Indication: MIGRAINE
     Route: 065
     Dates: start: 20160706
  9. IBRUTINIB [Suspect]
     Active Substance: IBRUTINIB
     Indication: CHRONIC LYMPHOCYTIC LEUKAEMIA STAGE 2
     Dosage: 420 MILLIGRAM DAILY;
     Route: 048
     Dates: start: 20160721

REACTIONS (2)
  - Rash maculo-papular [Recovered/Resolved]
  - Mitral valve disease [Recovered/Resolved with Sequelae]

NARRATIVE: CASE EVENT DATE: 20161021
